FAERS Safety Report 9639269 (Version 1)
Quarter: 2013Q4

REPORT INFORMATION
  Report Type: Spontaneous
  Country: CZ (occurrence: CZ)
  Receive Date: 20131022
  Receipt Date: 20131022
  Transmission Date: 20140711
  Serious: Yes (Other)
  Sender: FDA-Public Use
  Company Number: CZ-MYLANLABS-2013S1023100

PATIENT
  Age: 32 Year
  Sex: Female

DRUGS (15)
  1. BLEOMYCIN [Suspect]
     Indication: HODGKIN^S DISEASE
     Dosage: EIGHT CYCLES RECEIVED
     Route: 065
  2. BLEOMYCIN [Suspect]
     Indication: NON-HODGKIN^S LYMPHOMA
     Dosage: EIGHT CYCLES RECEIVED
     Route: 065
  3. ETOPOSIDE [Suspect]
     Indication: HODGKIN^S DISEASE
     Dosage: EIGHT CYCLES RECEIVED
     Route: 065
  4. ETOPOSIDE [Suspect]
     Indication: NON-HODGKIN^S LYMPHOMA
     Dosage: EIGHT CYCLES RECEIVED
     Route: 065
  5. ADRIAMYCIN [Suspect]
     Indication: HODGKIN^S DISEASE
     Dosage: EIGHT CYCLES RECEIVED
     Route: 065
  6. ADRIAMYCIN [Suspect]
     Indication: NON-HODGKIN^S LYMPHOMA
     Dosage: EIGHT CYCLES RECEIVED
     Route: 065
  7. CYCLOPHOSPHAMIDE [Suspect]
     Indication: HODGKIN^S DISEASE
     Dosage: EIGHT CYCLES RECEIVED
     Route: 065
  8. CYCLOPHOSPHAMIDE [Suspect]
     Indication: NON-HODGKIN^S LYMPHOMA
     Dosage: EIGHT CYCLES RECEIVED
     Route: 065
  9. VINCRISTINE [Suspect]
     Indication: HODGKIN^S DISEASE
     Dosage: EIGHT CYCLES RECEIVED
     Route: 065
  10. VINCRISTINE [Suspect]
     Indication: NON-HODGKIN^S LYMPHOMA
     Dosage: EIGHT CYCLES RECEIVED
     Route: 065
  11. PREDNISONE [Suspect]
     Indication: HODGKIN^S DISEASE
     Dosage: EIGHT CYCLES RECEIVED
     Route: 065
  12. PREDNISONE [Suspect]
     Indication: NON-HODGKIN^S LYMPHOMA
     Dosage: EIGHT CYCLES RECEIVED
     Route: 065
  13. PROCARBAZINE [Suspect]
     Indication: HODGKIN^S DISEASE
     Dosage: EIGHT CYCLES RECEIVED
     Route: 065
  14. PROCARBAZINE [Suspect]
     Indication: NON-HODGKIN^S LYMPHOMA
     Dosage: EIGHT CYCLES RECEIVED
     Route: 065
  15. RITUXIMAB [Suspect]
     Indication: NON-HODGKIN^S LYMPHOMA
     Dosage: 375 MG/M2; EIGHT CYCLES RECEIVED
     Route: 042

REACTIONS (7)
  - Neutropenia [Unknown]
  - Anaemia [Unknown]
  - Thrombocytopenia [Unknown]
  - Respiratory tract infection [Unknown]
  - Polyneuropathy [Unknown]
  - Amenorrhoea [Unknown]
  - Herpes zoster [Unknown]
